FAERS Safety Report 13357392 (Version 1)
Quarter: 2017Q1

REPORT INFORMATION
  Report Type: Spontaneous
  Country: GB (occurrence: GB)
  Receive Date: 20170322
  Receipt Date: 20170322
  Transmission Date: 20170429
  Serious: Yes (Other)
  Sender: FDA-Public Use
  Company Number: GB-TEVA-749416ACC

PATIENT
  Age: 30 Year
  Sex: Male

DRUGS (1)
  1. HALOPERIDOL. [Suspect]
     Active Substance: HALOPERIDOL
     Dosage: IN A 48 HOUR PERIOD PRIOR TO THE REACTION BUT NONE SINCE 11PM APPROXIMATELY THE NIGHT BEFORE.

REACTIONS (7)
  - Mouth swelling [Unknown]
  - Heart rate increased [Unknown]
  - Discomfort [Unknown]
  - Obstructive airways disorder [Unknown]
  - Joint stiffness [Unknown]
  - Dysphagia [Unknown]
  - Anaphylactic reaction [Unknown]

NARRATIVE: CASE EVENT DATE: 20161119
